FAERS Safety Report 4537570-9 (Version None)
Quarter: 2004Q4

REPORT INFORMATION
  Report Type: 
  Country: None (occurrence: None)
  Receive Date: 20041221
  Receipt Date: 20040903
  Transmission Date: 20050328
  Serious: No
  Sender: FDA-Public Use
  Company Number: A-US2004-07321

PATIENT
  Age: 6 Year
  Sex: Female

DRUGS (5)
  1. TRACLEER [Suspect]
     Indication: PULMONARY HYPERTENSION
     Dosage: 31.25 MG, BID, ORAL
     Route: 048
     Dates: start: 20040902
  2. LASIX [Concomitant]
  3. ASPIRIN [Concomitant]
  4. SINGULAIR [Concomitant]
  5. OXYGEN (OXYGEN) [Concomitant]

REACTIONS (2)
  - DIZZINESS [None]
  - HEADACHE [None]
